FAERS Safety Report 10019775 (Version 1)
Quarter: 2014Q1

REPORT INFORMATION
  Report Type: Spontaneous
  Country: US (occurrence: US)
  Receive Date: 20140318
  Receipt Date: 20140318
  Transmission Date: 20141002
  Serious: No
  Sender: FDA-Public Use
  Company Number: US-GALDERMA-US13003985

PATIENT
  Age: 53 Year
  Sex: Female

DRUGS (5)
  1. MIRVASO (BRIMONIDINE) TOPICAL GEL, 0.33% [Suspect]
     Indication: ROSACEA
     Dosage: 0.33%
     Route: 061
     Dates: start: 20131129
  2. CETAPHIL MOISTURIZING LOTION [Concomitant]
     Indication: DRY SKIN PROPHYLAXIS
     Route: 061
  3. OLAY SENSITIVE SKIN CLEANSER [Concomitant]
     Indication: THERAPEUTIC SKIN CARE TOPICAL
     Route: 061
  4. ESTEE LAUDER DOUBLE WEAR FOUNDATION [Concomitant]
     Route: 061
  5. ESTEE LAUDER BRONZER [Concomitant]
     Route: 061

REACTIONS (5)
  - Rebound effect [Not Recovered/Not Resolved]
  - Feeling hot [Recovered/Resolved]
  - Condition aggravated [Not Recovered/Not Resolved]
  - Flushing [Not Recovered/Not Resolved]
  - Erythema [Recovering/Resolving]
